FAERS Safety Report 25585686 (Version 2)
Quarter: 2025Q3

REPORT INFORMATION
  Report Type: Spontaneous
  Country: CN (occurrence: CN)
  Receive Date: 20250721
  Receipt Date: 20250724
  Transmission Date: 20251021
  Serious: Yes (Other)
  Sender: PFIZER
  Company Number: CN-PFIZER INC-PV202500085062

PATIENT
  Age: 51 Year
  Sex: Female
  Weight: 62 kg

DRUGS (6)
  1. EPIRUBICIN HYDROCHLORIDE [Suspect]
     Active Substance: EPIRUBICIN HYDROCHLORIDE
     Indication: Invasive breast carcinoma
     Dosage: 140 MG (87.5MG/M2), 1X/DAY
     Route: 041
     Dates: start: 20250513, end: 20250513
  2. EPIRUBICIN HYDROCHLORIDE [Suspect]
     Active Substance: EPIRUBICIN HYDROCHLORIDE
     Dosage: 140 MG (87.5MG/M2), 1X/DAY
     Route: 041
     Dates: start: 20250603, end: 20250603
  3. EPIRUBICIN HYDROCHLORIDE [Suspect]
     Active Substance: EPIRUBICIN HYDROCHLORIDE
     Dosage: 140 MG (87.5MG/M2), 1X/DAY
     Route: 041
     Dates: start: 20250624, end: 20250624
  4. CYCLOPHOSPHAMIDE [Suspect]
     Active Substance: CYCLOPHOSPHAMIDE
     Indication: Invasive breast carcinoma
     Dosage: 0.95 G (593.75MG/M2), 1X/DAY
     Route: 041
     Dates: start: 20250513, end: 20250513
  5. CYCLOPHOSPHAMIDE [Suspect]
     Active Substance: CYCLOPHOSPHAMIDE
     Dosage: 0.95 G (593.75MG/M2), 1X/DAY
     Route: 041
     Dates: start: 20250603, end: 20250603
  6. CYCLOPHOSPHAMIDE [Suspect]
     Active Substance: CYCLOPHOSPHAMIDE
     Dosage: 0.95 G (593.75MG/M2), 1X/DAY
     Route: 041
     Dates: start: 20250624, end: 20250624

REACTIONS (1)
  - Hepatic failure [Recovering/Resolving]

NARRATIVE: CASE EVENT DATE: 20250623
